FAERS Safety Report 7017934-4 (Version None)
Quarter: 2010Q3

REPORT INFORMATION
  Report Type: 
  Country: None (occurrence: None)
  Receive Date: 20100922
  Receipt Date: 20100914
  Transmission Date: 20110219
  Serious: Yes (Hospitalization, Other)
  Sender: FDA-Public Use
  Company Number: 014945

PATIENT
  Age: 75 Year
  Sex: Male

DRUGS (1)
  1. KEPPRA [Suspect]
     Dosage: 1000 MG, BID

REACTIONS (5)
  - ANXIETY [None]
  - CEREBRAL HAEMORRHAGE [None]
  - CEREBROVASCULAR ACCIDENT [None]
  - PARAESTHESIA [None]
  - TREMOR [None]
